FAERS Safety Report 22945773 (Version 6)
Quarter: 2025Q2

REPORT INFORMATION
  Report Type: Spontaneous
  Country: JP (occurrence: JP)
  Receive Date: 20230914
  Receipt Date: 20250513
  Transmission Date: 20250716
  Serious: Yes (Death, Hospitalization, Other)
  Sender: BRISTOL-MYERS SQUIBB COMPANY
  Company Number: JP-ONO-2023JP023230

PATIENT
  Age: 70 Year
  Sex: Male

DRUGS (3)
  1. OPDIVO [Suspect]
     Active Substance: NIVOLUMAB
     Indication: Oesophageal carcinoma
     Route: 041
     Dates: start: 20230913
  2. FLUOROURACIL [Concomitant]
     Active Substance: FLUOROURACIL
     Indication: Oesophageal carcinoma
     Dates: start: 20230913
  3. CISPLATIN [Concomitant]
     Active Substance: CISPLATIN
     Indication: Oesophageal carcinoma
     Dates: start: 20230913

REACTIONS (10)
  - Pancytopenia [Unknown]
  - Pneumonia [Unknown]
  - Systemic mycosis [Unknown]
  - Ascites [Unknown]
  - Hypothyroidism [Unknown]
  - Cytomegalovirus infection [Unknown]
  - Oedema [Unknown]
  - Pleural effusion [Unknown]
  - Neutrophil count decreased [Unknown]
  - Immune-mediated hepatic disorder [Fatal]
